FAERS Safety Report 19600812 (Version 1)
Quarter: 2021Q3

REPORT INFORMATION
  Report Type: Spontaneous
  Country: SE (occurrence: SE)
  Receive Date: 20210723
  Receipt Date: 20210723
  Transmission Date: 20211014
  Serious: Yes (Disabling)
  Sender: FDA-Public Use
  Company Number: SE-TEVA-2021-SE-1934512

PATIENT
  Age: 73 Year
  Sex: Female
  Weight: 91 kg

DRUGS (2)
  1. SIMVASTATIN TEVA 20 MG FILMDRAGERAD TABLETT [Suspect]
     Active Substance: SIMVASTATIN
     Indication: LIPIDS INCREASED
     Dosage: 20 MILLIGRAM DAILY;
     Route: 048
     Dates: start: 20180108, end: 20210601
  2. SIMVASTATIN TEVA 20 MG FILMDRAGERAD TABLETT [Suspect]
     Active Substance: SIMVASTATIN
     Indication: PROPHYLAXIS

REACTIONS (4)
  - Fatigue [Unknown]
  - Myalgia [Unknown]
  - Headache [Unknown]
  - Blood creatine increased [Unknown]

NARRATIVE: CASE EVENT DATE: 20210208
